FAERS Safety Report 17316779 (Version 1)
Quarter: 2020Q1

REPORT INFORMATION
  Report Type: Spontaneous
  Country: US (occurrence: US)
  Receive Date: 20200124
  Receipt Date: 20200124
  Transmission Date: 20200409
  Serious: No
  Sender: FDA-Public Use
  Company Number: US-PERRIGO-19US011929

PATIENT
  Age: 6 Year
  Sex: Male
  Weight: 23.13 kg

DRUGS (7)
  1. IBUPROFEN. [Suspect]
     Active Substance: IBUPROFEN
     Indication: PYREXIA
  2. IBUPROFEN. [Suspect]
     Active Substance: IBUPROFEN
     Indication: SNEEZING
  3. DIPHENHYDRAMINE HYDROCHLORIDE. [Concomitant]
     Active Substance: DIPHENHYDRAMINE HYDROCHLORIDE
     Indication: COUGH
     Dosage: 12.5 MG, EVERY 4 TO 6 HOURS
     Route: 048
     Dates: start: 20190929, end: 20191001
  4. DIPHENHYDRAMINE HYDROCHLORIDE. [Concomitant]
     Active Substance: DIPHENHYDRAMINE HYDROCHLORIDE
     Indication: PYREXIA
  5. IBUPROFEN. [Suspect]
     Active Substance: IBUPROFEN
     Indication: COUGH
     Dosage: 100 MG, SINGLE
     Route: 048
     Dates: start: 20191001, end: 20191001
  6. IBUPROFEN. [Suspect]
     Active Substance: IBUPROFEN
     Indication: RHINORRHOEA
  7. DIPHENHYDRAMINE HYDROCHLORIDE. [Concomitant]
     Active Substance: DIPHENHYDRAMINE HYDROCHLORIDE
     Indication: RHINORRHOEA

REACTIONS (2)
  - Rash [Not Recovered/Not Resolved]
  - Off label use [Recovered/Resolved]

NARRATIVE: CASE EVENT DATE: 20191001
